FAERS Safety Report 8241787-X (Version None)
Quarter: 2012Q1

REPORT INFORMATION
  Report Type: 
  Country: None (occurrence: None)
  Receive Date: 20120328
  Receipt Date: 20120319
  Transmission Date: 20120608
  Serious: Yes (Death)
  Sender: FDA-Public Use
  Company Number: TR-RB-038494-12

PATIENT
  Age: 40 Year
  Sex: Male

DRUGS (1)
  1. SUBOXONE [Suspect]
     Indication: DRUG DEPENDENCE
     Dosage: DAILY DOSAGE NOT AVAILABLE
     Route: 048

REACTIONS (1)
  - DEATH [None]
